FAERS Safety Report 8365567-X (Version None)
Quarter: 2012Q2

REPORT INFORMATION
  Report Type: 
  Country: None (occurrence: None)
  Receive Date: 20120516
  Receipt Date: 20110810
  Transmission Date: 20120825
  Serious: Yes (Other)
  Sender: FDA-Public Use
  Company Number: DE-ROCHE-801025

PATIENT
  Sex: Female
  Weight: 72 kg

DRUGS (3)
  1. AVASTIN [Suspect]
     Indication: NON-SMALL CELL LUNG CANCER
     Dosage: AT THE DOSE:7.5 MG/KG BODY WEIGHT ON DAYS 1 AND DAY 22.
     Route: 065
  2. GEMCITABINE [Concomitant]
     Indication: NON-SMALL CELL LUNG CANCER
     Dosage: FREQUENCY:DAY1/DAY8, EVERY 22 DAYS.
     Dates: start: 20110525
  3. CARBOPLATIN (NON-ROCHE/NON-COMPARATOR) [Concomitant]
     Indication: NON-SMALL CELL LUNG CANCER
     Dates: start: 20110525

REACTIONS (3)
  - METASTASIS [None]
  - NECROSIS [None]
  - ULTRASOUND SCAN ABNORMAL [None]
